FAERS Safety Report 15587790 (Version 1)
Quarter: 2018Q4

REPORT INFORMATION
  Report Type: Spontaneous
  Country: US (occurrence: US)
  Receive Date: 20181101
  Receipt Date: 20181101
  Transmission Date: 20190205
  Serious: Yes (Hospitalization)
  Sender: FDA-Public Use
  Company Number: None

PATIENT
  Age: 11 Month
  Sex: Male

DRUGS (5)
  1. HYDROCHLOROT [Concomitant]
     Active Substance: HYDROCHLOROTHIAZIDE
  2. VITAMIN D3 [Concomitant]
     Active Substance: CHOLECALCIFEROL
  3. VIGABATRIN 500MG PWD [Suspect]
     Active Substance: VIGABATRIN
     Indication: INFANTILE SPASMS
     Dosage: 500MG QAM, 750MG QPM QD PO?
     Route: 048
     Dates: start: 20180509
  4. KEPPRA [Concomitant]
     Active Substance: LEVETIRACETAM
  5. VIGABATRIN 500MG PWD [Suspect]
     Active Substance: VIGABATRIN
     Indication: INFANTILE SPASMS
     Dosage: ?          OTHER DOSE:750MG QPM;?

REACTIONS (1)
  - Seizure [None]

NARRATIVE: CASE EVENT DATE: 20181022
